FAERS Safety Report 19412927 (Version 1)
Quarter: 2021Q2

REPORT INFORMATION
  Report Type: Spontaneous
  Country: US (occurrence: US)
  Receive Date: 20210614
  Receipt Date: 20210614
  Transmission Date: 20210717
  Serious: Yes (Hospitalization)
  Sender: FDA-Public Use
  Company Number: US-CELLTRION-2021-US-012318

PATIENT
  Age: 14 Year
  Sex: Female

DRUGS (1)
  1. RISPERIDONE (NON?SPECIFIC) [Suspect]
     Active Substance: RISPERIDONE
     Indication: MEDICATION ERROR
     Dosage: UNK

REACTIONS (2)
  - Delirium [None]
  - Medication error [Recovered/Resolved]
